FAERS Safety Report 7299263-7 (Version None)
Quarter: 2011Q1

REPORT INFORMATION
  Report Type: 
  Country: None (occurrence: None)
  Receive Date: 20110217
  Receipt Date: 20110203
  Transmission Date: 20110831
  Serious: Yes (Other)
  Sender: FDA-Public Use
  Company Number: SE-MYLANLABS-2011S1002358

PATIENT
  Sex: Female

DRUGS (1)
  1. SOTALOL HCL [Suspect]
     Indication: TACHYCARDIA

REACTIONS (5)
  - DRY EYE [None]
  - MYDRIASIS [None]
  - BLOOD THYROID STIMULATING HORMONE INCREASED [None]
  - PERIPHERAL COLDNESS [None]
  - VISION BLURRED [None]
